FAERS Safety Report 5404753-5 (Version None)
Quarter: 2007Q3

REPORT INFORMATION
  Report Type: 
  Country: None (occurrence: None)
  Receive Date: 20070801
  Receipt Date: 20070719
  Transmission Date: 20080115
  Serious: Yes (Death)
  Sender: FDA-Public Use
  Company Number: S07-FIN-03231-01

PATIENT
  Age: 73 Year
  Sex: Male

DRUGS (6)
  1. CIPRALEX       (ESCITALOPRAM) [Suspect]
     Indication: DEPRESSION
     Dosage: 10 MG QD PO
     Route: 048
     Dates: start: 20070705, end: 20070711
  2. EMCONCOR                            /SPA/ (BISOPROLOL) [Concomitant]
  3. PRAVASTATIN [Concomitant]
  4. WARFARIN SODIUM [Concomitant]
  5. ENALAPRIL MALEATE [Concomitant]
  6. FUROSEMIDE [Concomitant]

REACTIONS (2)
  - COMPLETED SUICIDE [None]
  - GUN SHOT WOUND [None]
